FAERS Safety Report 8232251-2 (Version None)
Quarter: 2012Q1

REPORT INFORMATION
  Report Type: 
  Country: None (occurrence: None)
  Receive Date: 20120323
  Receipt Date: 20120313
  Transmission Date: 20120608
  Serious: Yes (Hospitalization)
  Sender: FDA-Public Use
  Company Number: JP-ACTELION-A-CH2011-58267

PATIENT
  Sex: Female
  Weight: 53.5 kg

DRUGS (6)
  1. PREDNISOLONE [Concomitant]
  2. RISEDRONATE SODIUM [Concomitant]
  3. TRACLEER [Suspect]
     Indication: PULMONARY ARTERIAL HYPERTENSION
     Dosage: 62.5 MG, BID
     Route: 048
     Dates: start: 20111130, end: 20111207
  4. PREGABALIN [Concomitant]
  5. TRACLEER [Suspect]
     Dosage: 15.63 MG, BID
     Route: 048
     Dates: start: 20120105
  6. BERAPROST SODIUM [Concomitant]

REACTIONS (5)
  - CARDIAC FAILURE CONGESTIVE [None]
  - FACE OEDEMA [None]
  - CARDIOMEGALY [None]
  - FLUID OVERLOAD [None]
  - WEIGHT INCREASED [None]
